FAERS Safety Report 21867750 (Version 1)
Quarter: 2023Q1

REPORT INFORMATION
  Report Type: Spontaneous
  Country: ZA (occurrence: ZA)
  Receive Date: 20230116
  Receipt Date: 20230116
  Transmission Date: 20230418
  Serious: Yes (Life-Threatening)
  Sender: FDA-Public Use
  Company Number: ZA-GLAXOSMITHKLINE-ZA2023EME005288

PATIENT

DRUGS (1)
  1. WELLBUTRIN [Suspect]
     Active Substance: BUPROPION HYDROCHLORIDE
     Indication: Weight decreased
     Dosage: UNK

REACTIONS (4)
  - Skin exfoliation [Unknown]
  - Palpitations [Unknown]
  - Asthma [Unknown]
  - Product use in unapproved indication [Unknown]
